FAERS Safety Report 12188506 (Version 1)
Quarter: 2016Q1

REPORT INFORMATION
  Report Type: Other
  Country: US (occurrence: US)
  Receive Date: 20160317
  Receipt Date: 20160317
  Transmission Date: 20160526
  Serious: Yes (Hospitalization)
  Sender: FDA-Public Use
  Company Number: US-SHIRE-US201602998

PATIENT
  Age: 42 Year
  Sex: Female

DRUGS (2)
  1. NATPARA (PARATHYROID HORMONE) [Suspect]
     Active Substance: PARATHYROID HORMONE
     Indication: HYPOPARATHYROIDISM
     Dosage: 50 ?G, 1X/DAY:QD, IN THIGH, ALTERNATE THIGH
     Route: 058
     Dates: start: 20150723
  2. NATPARA (PARATHYROID HORMONE) [Suspect]
     Active Substance: PARATHYROID HORMONE
     Indication: HYPERPARATHYROIDISM PRIMARY
     Dosage: 50 ?G, 1X/DAY:QD, IN THIGH, ALTERNATE THIGH
     Route: 058
     Dates: start: 20150723

REACTIONS (2)
  - Incorrect dose administered by device [Unknown]
  - Blood calcium decreased [Recovered/Resolved]

NARRATIVE: CASE EVENT DATE: 20160309
